FAERS Safety Report 23577918 (Version 1)
Quarter: 2024Q1

REPORT INFORMATION
  Report Type: Spontaneous
  Country: BE (occurrence: BE)
  Receive Date: 20240228
  Receipt Date: 20240228
  Transmission Date: 20240410
  Serious: Yes (Other)
  Sender: FDA-Public Use
  Company Number: BE-CELLTRION INC.-2023BE025569

PATIENT

DRUGS (9)
  1. INFLIXIMAB [Suspect]
     Active Substance: INFLIXIMAB
     Indication: Enterocolitis
     Dosage: 10 MG/KG BODY WEIGHT; UNKNOWN (HIGH-DOSE);MULTIPLE HIGH-DOSE
     Route: 065
  2. INFLIXIMAB [Suspect]
     Active Substance: INFLIXIMAB
     Indication: Immune-mediated enterocolitis
  3. METHOTREXATE [Concomitant]
     Active Substance: METHOTREXATE
     Indication: Enterocolitis
     Dosage: UNKNOWN
     Route: 065
  4. MYCOPHENOLATE MOFETIL [Concomitant]
     Active Substance: MYCOPHENOLATE MOFETIL
     Indication: Enterocolitis
     Dosage: UNKNOWN
     Route: 065
  5. VEDOLIZUMAB [Concomitant]
     Active Substance: VEDOLIZUMAB
     Indication: Enterocolitis
     Dosage: UNKNOWN
     Route: 065
  6. AZITHROMYCIN [Concomitant]
     Active Substance: AZITHROMYCIN
     Indication: Cytomegalovirus colitis
     Dosage: 500 MILLIGRAM, EVERY 1 DAY
     Route: 065
  7. AZITHROMYCIN [Concomitant]
     Active Substance: AZITHROMYCIN
     Indication: Campylobacter colitis
  8. GANCICLOVIR [Concomitant]
     Active Substance: GANCICLOVIR
     Indication: Campylobacter colitis
     Dosage: 5 MG/KG, EVERY 12 HOUR
     Route: 065
  9. GANCICLOVIR [Concomitant]
     Active Substance: GANCICLOVIR
     Indication: Cytomegalovirus colitis

REACTIONS (7)
  - Intestinal stenosis [Recovered/Resolved]
  - Sepsis [Recovered/Resolved]
  - Cachexia [Recovered/Resolved]
  - Bacterial translocation [Recovered/Resolved]
  - Device related infection [Recovered/Resolved]
  - Drug ineffective for unapproved indication [Unknown]
  - Off label use [Unknown]
